FAERS Safety Report 8718854 (Version 3)
Quarter: 2013Q4

REPORT INFORMATION
  Report Type: Spontaneous
  Country: US (occurrence: US)
  Receive Date: 20120810
  Receipt Date: 20131105
  Transmission Date: 20140711
  Serious: Yes (Hospitalization, Other)
  Sender: FDA-Public Use
  Company Number: US-009507513-1207USA012073

PATIENT
  Age: 43 Year
  Sex: Male

DRUGS (7)
  1. VICTRELIS [Suspect]
     Route: 048
  2. PEGASYS [Suspect]
     Route: 048
  3. COPEGUS [Suspect]
     Route: 048
  4. ALDACTONE TABLETS [Concomitant]
  5. INIPOMP [Concomitant]
  6. NOROXINE [Concomitant]
  7. AVLOCARDYL [Concomitant]

REACTIONS (2)
  - Oedema peripheral [Unknown]
  - Neutropenia [Unknown]
